FAERS Safety Report 9729709 (Version 2)
Quarter: 2015Q3

REPORT INFORMATION
  Report Type: Spontaneous
  Country: US (occurrence: US)
  Receive Date: 20131204
  Receipt Date: 20150804
  Transmission Date: 20151125
  Serious: No
  Sender: FDA-Public Use
  Company Number: US-GILEAD-2009-0021758

PATIENT
  Age: 11 Year
  Sex: Male
  Weight: 40.82 kg

DRUGS (11)
  1. DILTIAZEM [Concomitant]
     Active Substance: DILTIAZEM
  2. ALBUTEROL. [Concomitant]
     Active Substance: ALBUTEROL
  3. COUMADIN [Concomitant]
     Active Substance: WARFARIN SODIUM
  4. FLOVENT [Concomitant]
     Active Substance: FLUTICASONE PROPIONATE
  5. DIGOXIN. [Concomitant]
     Active Substance: DIGOXIN
  6. VENTAVIS [Concomitant]
     Active Substance: ILOPROST
     Indication: PULMONARY ARTERIAL HYPERTENSION
  7. OXYGEN. [Concomitant]
     Active Substance: OXYGEN
  8. REVATIO [Concomitant]
     Active Substance: SILDENAFIL CITRATE
  9. CETIRIZINE HCL [Concomitant]
     Active Substance: CETIRIZINE HYDROCHLORIDE
  10. CLARITIN [Concomitant]
     Active Substance: LORATADINE
  11. LETAIRIS [Suspect]
     Active Substance: AMBRISENTAN
     Indication: PULMONARY ARTERIAL HYPERTENSION
     Route: 048
     Dates: start: 20090114

REACTIONS (1)
  - Rash [Unknown]

NARRATIVE: CASE EVENT DATE: 20090501
